FAERS Safety Report 9759797 (Version 2)
Quarter: 2014Q1

REPORT INFORMATION
  Report Type: Spontaneous
  Country: DE (occurrence: None)
  Receive Date: 20131212
  Receipt Date: 20140123
  Transmission Date: 20141002
  Serious: Yes (Death, Hospitalization)
  Sender: FDA-Public Use
  Company Number: 1312-1563

PATIENT
  Age: 91 Year
  Sex: Male

DRUGS (1)
  1. EYLEA [Suspect]
     Indication: AGE-RELATED MACULAR DEGENERATION
     Dates: start: 20130603, end: 20131023

REACTIONS (4)
  - Intestinal ischaemia [None]
  - Intestinal perforation [None]
  - Thrombosis [None]
  - Intestinal infarction [None]
